FAERS Safety Report 14896904 (Version 1)
Quarter: 2018Q2

REPORT INFORMATION
  Report Type: Spontaneous
  Country: BR (occurrence: BR)
  Receive Date: 20180515
  Receipt Date: 20180515
  Transmission Date: 20180711
  Serious: Yes (Hospitalization, Other)
  Sender: FDA-Public Use
  Company Number: PHHY2018BR006965

PATIENT
  Sex: Female
  Weight: 78 kg

DRUGS (5)
  1. CAPTOPRIL. [Suspect]
     Active Substance: CAPTOPRIL
     Indication: PRODUCT USED FOR UNKNOWN INDICATION
     Route: 065
  2. METFORMIN HYDROCHLORIDE. [Concomitant]
     Active Substance: METFORMIN HYDROCHLORIDE
     Indication: PRODUCT USED FOR UNKNOWN INDICATION
     Route: 065
  3. OLCADIL [Suspect]
     Active Substance: CLOXAZOLAM
     Indication: HYPERTENSION
     Dosage: 1 DF, QD
     Route: 065
  4. HYGROTON [Suspect]
     Active Substance: CHLORTHALIDONE
     Indication: PRODUCT USED FOR UNKNOWN INDICATION
     Route: 065
  5. NIFEDIPLEX [Concomitant]
     Indication: PRODUCT USED FOR UNKNOWN INDICATION
     Route: 065

REACTIONS (9)
  - Panic disorder [Unknown]
  - Hypertension [Recovering/Resolving]
  - Road traffic accident [Recovered/Resolved]
  - Glaucoma [Not Recovered/Not Resolved]
  - Ocular hyperaemia [Recovering/Resolving]
  - Wrong technique in product usage process [Unknown]
  - Facial paralysis [Recovering/Resolving]
  - Depressed mood [Unknown]
  - Inappropriate schedule of drug administration [Unknown]
